FAERS Safety Report 8423418-9 (Version None)
Quarter: 2012Q2

REPORT INFORMATION
  Report Type: 
  Country: None (occurrence: None)
  Receive Date: 20120608
  Receipt Date: 20120529
  Transmission Date: 20120825
  Serious: Yes (Hospitalization, Other)
  Sender: FDA-Public Use
  Company Number: RO-ABBOTT-12P-135-0926578-00

PATIENT
  Sex: Male
  Weight: 82 kg

DRUGS (3)
  1. HUMIRA [Suspect]
     Indication: PSORIASIS
     Route: 058
     Dates: start: 20101014, end: 20120417
  2. METHOTREXATE [Concomitant]
     Indication: PRODUCT USED FOR UNKNOWN INDICATION
     Route: 050
     Dates: end: 20111201
  3. METHOTREXATE [Concomitant]
     Dates: start: 20111015

REACTIONS (3)
  - ARTHRITIS [None]
  - PULMONARY TUBERCULOSIS [None]
  - WEIGHT DECREASED [None]
